FAERS Safety Report 21239897 (Version 1)
Quarter: 2022Q3

REPORT INFORMATION
  Report Type: Report from Study
  Country: US (occurrence: US)
  Receive Date: 20220822
  Receipt Date: 20220822
  Transmission Date: 20221027
  Serious: Yes (Other)
  Sender: FDA-Public Use
  Company Number: US-MYLANLABS-2022M1087938

PATIENT
  Age: 44 Year
  Sex: Female

DRUGS (3)
  1. ADALIMUMAB [Suspect]
     Active Substance: ADALIMUMAB
     Indication: Pyoderma gangrenosum
     Dosage: UNK
     Route: 065
  2. MUPIROCIN [Suspect]
     Active Substance: MUPIROCIN
     Indication: Pyoderma gangrenosum
     Dosage: UNK
     Route: 061
  3. INFLIXIMAB [Suspect]
     Active Substance: INFLIXIMAB
     Indication: Pyoderma gangrenosum
     Dosage: UNK
     Route: 065

REACTIONS (2)
  - Drug ineffective for unapproved indication [Unknown]
  - Off label use [Unknown]
